FAERS Safety Report 8541630-5 (Version None)
Quarter: 2012Q3

REPORT INFORMATION
  Report Type: 
  Country: None (occurrence: None)
  Receive Date: 20120726
  Receipt Date: 20120717
  Transmission Date: 20120928
  Serious: Yes (Other)
  Sender: FDA-Public Use
  Company Number: US-GLAXOSMITHKLINE-A0876549A

PATIENT
  Sex: Female
  Weight: 108.6 kg

DRUGS (2)
  1. AVANDIA [Suspect]
     Indication: DIABETES MELLITUS
     Dosage: 4MG UNKNOWN
     Route: 048
     Dates: end: 20060101
  2. AVANDAMET [Suspect]
     Indication: DIABETES MELLITUS
     Route: 048
     Dates: start: 20030101, end: 20080101

REACTIONS (20)
  - HYPERTENSION [None]
  - PULMONARY HYPERTENSION [None]
  - SPLENOMEGALY [None]
  - SLEEP APNOEA SYNDROME [None]
  - CARDIAC DISORDER [None]
  - DYSLIPIDAEMIA [None]
  - CHEST PAIN [None]
  - CARDIOVASCULAR DISORDER [None]
  - PULMONARY OEDEMA [None]
  - HEPATIC LESION [None]
  - ASTHMA [None]
  - HAEMANGIOMA OF LIVER [None]
  - NON-ALCOHOLIC STEATOHEPATITIS [None]
  - CARDIAC MURMUR [None]
  - BRONCHIAL HYPERREACTIVITY [None]
  - BLADDER NEOPLASM SURGERY [None]
  - DYSPNOEA [None]
  - SWELLING [None]
  - OEDEMA [None]
  - HEPATIC CIRRHOSIS [None]
